FAERS Safety Report 4539533-6 (Version None)
Quarter: 2004Q4

REPORT INFORMATION
  Report Type: 
  Country: None (occurrence: None)
  Receive Date: 20041222
  Receipt Date: 20041014
  Transmission Date: 20050328
  Serious: Yes (Other)
  Sender: FDA-Public Use
  Company Number: 206337

PATIENT
  Age: 63 Year
  Sex: Female

DRUGS (7)
  1. AVONEX [Suspect]
     Indication: MULTIPLE SCLEROSIS
     Dosage: 30 UG;QW;IM
     Route: 030
     Dates: start: 19970201, end: 20030101
  2. AVONEX [Suspect]
     Indication: MULTIPLE SCLEROSIS
     Dosage: 30 UG;QW;IM
     Route: 030
     Dates: start: 20030101
  3. KLONOPIN [Concomitant]
  4. ASPIRIN [Concomitant]
  5. HYZAAR [Concomitant]
  6. POTASSIUM [Concomitant]
  7. PLAVIX [Concomitant]

REACTIONS (6)
  - COGNITIVE DISORDER [None]
  - CONFUSIONAL STATE [None]
  - CONVULSION [None]
  - JOINT STIFFNESS [None]
  - MEMORY IMPAIRMENT [None]
  - OSTEOARTHRITIS [None]
